FAERS Safety Report 5320415-7 (Version None)
Quarter: 2007Q2

REPORT INFORMATION
  Report Type: 
  Country: None (occurrence: None)
  Receive Date: 20070509
  Receipt Date: 20070502
  Transmission Date: 20071010
  Serious: Yes (Hospitalization)
  Sender: FDA-Public Use
  Company Number: B0469579A

PATIENT
  Sex: Female

DRUGS (1)
  1. PANADOL ACTIFAST [Suspect]
     Indication: ANALGESIC EFFECT
     Dosage: 2TAB PER DAY
     Route: 048
     Dates: start: 20070429, end: 20070429

REACTIONS (1)
  - DRUG INEFFECTIVE [None]
